FAERS Safety Report 9993289 (Version 1)
Quarter: 2014Q1

REPORT INFORMATION
  Report Type: Spontaneous
  Country: US (occurrence: US)
  Receive Date: 20140310
  Receipt Date: 20140310
  Transmission Date: 20141002
  Serious: No
  Sender: FDA-Public Use
  Company Number: US-BAUSCH-BL-2013-003620

PATIENT
  Age: 10 Year
  Sex: Female
  Weight: 29.06 kg

DRUGS (2)
  1. DESMOPRESSIN ACETATE NASAL SOLUTION 0.01% [Suspect]
     Indication: ENURESIS
     Dosage: 1 SPRAY IN LEFT NOSTRIL, ONE TIME
     Route: 045
     Dates: start: 20130531, end: 20130531
  2. DESMOPRESSIN ACETATE NASAL SOLUTION 0.01% [Suspect]
     Dosage: 1 SPRAY IN RIGHT NOSTRIL, ONE TIME
     Route: 045
     Dates: start: 20130531, end: 20130531

REACTIONS (2)
  - Off label use [Recovered/Resolved]
  - Epistaxis [Recovered/Resolved]
